FAERS Safety Report 26019521 (Version 1)
Quarter: 2025Q4

REPORT INFORMATION
  Report Type: Spontaneous
  Country: EU (occurrence: EU)
  Receive Date: 20251110
  Receipt Date: 20251110
  Transmission Date: 20260118
  Serious: Yes (Hospitalization, Other)
  Sender: SANOFI AVENTIS
  Company Number: EU-SA-2025SA330395

PATIENT
  Age: 69 Year
  Sex: Female

DRUGS (5)
  1. CABLIVI [Suspect]
     Active Substance: CAPLACIZUMAB-YHDP
     Indication: Activated partial thromboplastin time
     Dosage: UNK
     Route: 065
     Dates: start: 20251013, end: 20251023
  2. CABLIVI [Suspect]
     Active Substance: CAPLACIZUMAB-YHDP
     Indication: Activated partial thromboplastin time
     Dosage: UNK
     Route: 065
     Dates: start: 20251013, end: 20251023
  3. CABLIVI [Suspect]
     Active Substance: CAPLACIZUMAB-YHDP
     Indication: Activated partial thromboplastin time
     Dosage: UNK
     Route: 065
     Dates: start: 20251013, end: 20251023
  4. CABLIVI [Suspect]
     Active Substance: CAPLACIZUMAB-YHDP
     Indication: Activated partial thromboplastin time
     Dosage: UNK
     Route: 065
     Dates: start: 20251013, end: 20251023
  5. RITUXIMAB [Concomitant]
     Active Substance: RITUXIMAB
     Indication: Activated partial thromboplastin time

REACTIONS (1)
  - Thrombosis [Recovering/Resolving]

NARRATIVE: CASE EVENT DATE: 20251023
